FAERS Safety Report 6260250-9 (Version None)
Quarter: 2009Q3

REPORT INFORMATION
  Report Type: 
  Country: None (occurrence: None)
  Receive Date: 20090708
  Receipt Date: 20090629
  Transmission Date: 20100115
  Serious: Yes (Hospitalization)
  Sender: FDA-Public Use
  Company Number: IT-WATSON-2009-05013

PATIENT
  Age: 20 Month
  Sex: Female
  Weight: 11 kg

DRUGS (4)
  1. ACETAMINOPHEN/CODEINE PHOSPHATE 300/15 (WATSON LABORATORIES) [Suspect]
     Indication: SKIN LESION
     Dosage: 120 MG, DAILY
  2. KETOPROFEN [Concomitant]
     Indication: SKIN LESION
     Dosage: 50 MG, DAILY
     Route: 065
  3. VINCRISTINE [Concomitant]
     Indication: NEPHROBLASTOMA
     Dosage: UNK
  4. DACTINOMYCIN [Concomitant]
     Indication: NEPHROBLASTOMA
     Dosage: UNK

REACTIONS (2)
  - ACUTE HEPATIC FAILURE [None]
  - HEPATIC ENCEPHALOPATHY [None]
